FAERS Safety Report 7479793-5 (Version None)
Quarter: 2011Q2

REPORT INFORMATION
  Report Type: 
  Country: None (occurrence: None)
  Receive Date: 20110513
  Receipt Date: 20110506
  Transmission Date: 20111010
  Serious: Yes (Hospitalization)
  Sender: FDA-Public Use
  Company Number: JP-MERCK-1104USA02261

PATIENT
  Age: 63 Year
  Sex: Female

DRUGS (16)
  1. BARACLUDE [Concomitant]
     Route: 048
  2. LAMISIL [Concomitant]
     Route: 061
  3. MUCODYNE [Concomitant]
     Route: 048
  4. CYTOTEC [Concomitant]
     Route: 048
  5. METHYCOBAL [Concomitant]
     Route: 048
  6. FOSAMAX [Suspect]
     Indication: OSTEOPOROSIS
     Route: 048
     Dates: end: 20100701
  7. HYZAAR [Concomitant]
     Route: 048
  8. PREDNISOLONE [Suspect]
     Indication: RHEUMATOID ARTHRITIS
     Route: 048
  9. SELTOUCH [Concomitant]
     Route: 061
  10. AZELASTINE HCL [Concomitant]
     Route: 048
  11. AZELASTINE [Concomitant]
     Route: 048
  12. NOBFEN (LOXOPROFEN SODIUM) [Concomitant]
     Route: 048
  13. FOSAMAX [Suspect]
     Route: 048
     Dates: start: 20030101
  14. PREDNISOLONE [Suspect]
     Indication: RHEUMATOID ARTHRITIS
     Route: 048
  15. ARAVA [Concomitant]
     Route: 048
  16. LAC-B [Concomitant]
     Route: 048

REACTIONS (1)
  - FEMUR FRACTURE [None]
